FAERS Safety Report 8985300 (Version 1)
Quarter: 2012Q4

REPORT INFORMATION
  Report Type: Report from Study
  Country: US (occurrence: US)
  Receive Date: 20121226
  Receipt Date: 20121226
  Transmission Date: 20130627
  Serious: Yes (Hospitalization)
  Sender: FDA-Public Use
  Company Number: US-JNJFOC-20121208384

PATIENT
  Sex: Male

DRUGS (9)
  1. ABIRATERONE ACETATE [Suspect]
     Route: 048
  2. ABIRATERONE ACETATE [Suspect]
     Indication: PROSTATE CANCER
     Route: 048
     Dates: start: 20120720
  3. DASATINIB [Suspect]
     Indication: PROSTATE CANCER
     Route: 065
  4. SUNITINIB [Suspect]
     Indication: PROSTATE CANCER
     Route: 065
  5. DOCUSATE SODIUM [Concomitant]
     Route: 048
  6. SENOKOT-S [Concomitant]
     Route: 048
  7. PROTONIX [Concomitant]
     Route: 048
  8. METHADONE [Concomitant]
     Route: 048
  9. NYSTATIN [Concomitant]
     Dosage: 500000 units
     Route: 065

REACTIONS (2)
  - Muscular weakness [Unknown]
  - Pain [Unknown]
